FAERS Safety Report 22861855 (Version 7)
Quarter: 2023Q4

REPORT INFORMATION
  Report Type: Report from Study
  Country: US (occurrence: US)
  Receive Date: 20230824
  Receipt Date: 20231129
  Transmission Date: 20240109
  Serious: Yes (Life-Threatening, Hospitalization, Other)
  Sender: FDA-Public Use
  Company Number: US-002147023-NVSC2023US184475

PATIENT
  Sex: Male

DRUGS (2)
  1. ENTRESTO [Suspect]
     Active Substance: SACUBITRIL\VALSARTAN
     Indication: Product used for unknown indication
     Dosage: UNK
     Route: 065
  2. CARVEDILOL [Suspect]
     Active Substance: CARVEDILOL
     Indication: Product used for unknown indication
     Dosage: UNK
     Route: 065

REACTIONS (9)
  - Fall [Recovering/Resolving]
  - Clavicle fracture [Recovering/Resolving]
  - Loss of consciousness [Unknown]
  - Cerebral haemorrhage [Unknown]
  - Head injury [Recovering/Resolving]
  - Fibula fracture [Recovering/Resolving]
  - Blood pressure decreased [Recovering/Resolving]
  - Dizziness [Unknown]
  - Drug ineffective [Unknown]
